FAERS Safety Report 13581550 (Version 1)
Quarter: 2017Q2

REPORT INFORMATION
  Report Type: Spontaneous
  Country: GB (occurrence: GB)
  Receive Date: 20170525
  Receipt Date: 20170525
  Transmission Date: 20170830
  Serious: Yes (Other)
  Sender: FDA-Public Use
  Company Number: GB-AUROBINDO-AUR-APL-2017-34091

PATIENT
  Sex: Male

DRUGS (7)
  1. LOPERAMIDE HYDROCHLORIDE. [Concomitant]
     Active Substance: LOPERAMIDE HYDROCHLORIDE
     Indication: DIARRHOEA
     Dosage: DOSAGE FORM: UNSPECIFIED
     Route: 065
  2. PREGABALIN. [Concomitant]
     Active Substance: PREGABALIN
     Indication: ANXIETY
     Dosage: DOSAGE FORM: UNSPECIFIED
     Route: 065
  3. RISPERIDONE. [Suspect]
     Active Substance: RISPERIDONE
     Indication: PRODUCT USED FOR UNKNOWN INDICATION
     Dosage: DOSAGE FORM: UNSPECIFIED
     Route: 065
  4. QUETIAPINE. [Suspect]
     Active Substance: QUETIAPINE
     Indication: PRODUCT USED FOR UNKNOWN INDICATION
     Dosage: DOSAGE FORM: UNSPECIFIED
     Route: 065
  5. ESOMEPRAZOLE [Concomitant]
     Active Substance: ESOMEPRAZOLE
     Indication: GASTROOESOPHAGEAL REFLUX DISEASE
     Dosage: DOSAGE FORM: UNSPECIFIED
     Route: 065
  6. RISPERIDONE. [Suspect]
     Active Substance: RISPERIDONE
     Dosage: DOSAGE FORM: UNSPECIFIED, REDUCED DOSE
     Route: 065
  7. RANITIDINE. [Concomitant]
     Active Substance: RANITIDINE
     Indication: GASTROOESOPHAGEAL REFLUX DISEASE
     Dosage: DOSAGE FORM: UNSPECIFIED
     Route: 065

REACTIONS (3)
  - Seizure [Unknown]
  - Waist circumference increased [Unknown]
  - Hunger [Unknown]
